FAERS Safety Report 7536376-6 (Version None)
Quarter: 2011Q2

REPORT INFORMATION
  Report Type: 
  Country: None (occurrence: None)
  Receive Date: 20110602
  Receipt Date: 20110520
  Transmission Date: 20111010
  Serious: Yes (Life-Threatening, Hospitalization)
  Sender: FDA-Public Use
  Company Number: 2011AP001043

PATIENT
  Age: 68 Year
  Sex: Female

DRUGS (8)
  1. SIMVASTATIN [Concomitant]
  2. OMEPRAZOLE [Concomitant]
  3. DICLOFENAC SODIUM [Concomitant]
  4. WARFARIN SODIUM [Suspect]
     Indication: PULMONARY EMBOLISM
     Dosage: 3 MG, PO QD
     Route: 048
     Dates: start: 20110420
  5. PREDNISOLONE [Suspect]
     Indication: MUSCULOSKELETAL PAIN
     Dosage: 7.5 MG, QD, PO
     Route: 048
  6. FERROUS FUMARATE [Concomitant]
  7. ASPIRIN [Suspect]
     Indication: ANTIPLATELET THERAPY
     Dosage: 75 MG, QD, PO
     Route: 048
  8. CITALOPRAM HYDROBROMIDE [Suspect]
     Indication: DEPRESSION
     Dosage: 20 MG, PO
     Route: 048

REACTIONS (4)
  - RECTAL HAEMORRHAGE [None]
  - HAEMOGLOBIN DECREASED [None]
  - PULMONARY EMBOLISM [None]
  - GASTROINTESTINAL ULCER [None]
